FAERS Safety Report 11201839 (Version 1)
Quarter: 2015Q2

REPORT INFORMATION
  Report Type: Spontaneous
  Country: US (occurrence: None)
  Receive Date: 20150617
  Receipt Date: 20150617
  Transmission Date: 20150821
  Serious: Yes (Life-Threatening, Hospitalization)
  Sender: FDA-Public Use
  Company Number: None

PATIENT
  Age: 27 Year
  Sex: Male
  Weight: 69.1 kg

DRUGS (4)
  1. CLONIDINE. [Suspect]
     Active Substance: CLONIDINE
     Indication: ANXIETY
     Route: 048
     Dates: start: 20150511, end: 20150513
  2. LORAZEPAM. [Suspect]
     Active Substance: LORAZEPAM
     Indication: ANXIETY
     Route: 048
     Dates: start: 20150512, end: 20150513
  3. LORAZEPAM. [Suspect]
     Active Substance: LORAZEPAM
     Indication: AGITATION
     Route: 048
     Dates: start: 20150512, end: 20150513
  4. CLONIDINE. [Suspect]
     Active Substance: CLONIDINE
     Indication: AGITATION
     Route: 048
     Dates: start: 20150511, end: 20150513

REACTIONS (6)
  - Bradycardia [None]
  - Headache [None]
  - Abdominal pain [None]
  - Asthenia [None]
  - Hypertension [None]
  - Fatigue [None]

NARRATIVE: CASE EVENT DATE: 20150513
